FAERS Safety Report 7118284-8 (Version None)
Quarter: 2010Q4

REPORT INFORMATION
  Report Type: 
  Country: None (occurrence: None)
  Receive Date: 20101118
  Receipt Date: 20101118
  Transmission Date: 20110411
  Serious: No
  Sender: FDA-Public Use
  Company Number: None

PATIENT
  Age: 49 Year
  Sex: Female
  Weight: 86.1834 kg

DRUGS (2)
  1. ENBREL 50 MG/ML IMMUNEX CORPERATION [Suspect]
     Indication: PSORIASIS
     Dosage: 2 A WEEK OTHER (2005 TO 2010 BACK AND 4TH)
     Route: 050
  2. HUMIRA 40MG/0.8 ML ABBOT LABRATORIES [Suspect]
     Indication: PSORIATIC ARTHROPATHY
     Dosage: 40MG A WEEK OTHER (2005 TO 2010 BACK AND 4TH)
     Route: 050

REACTIONS (15)
  - ARTHRALGIA [None]
  - ARTHRITIS [None]
  - DIARRHOEA [None]
  - EYE PAIN [None]
  - FATIGUE [None]
  - FEELING ABNORMAL [None]
  - INFECTION [None]
  - LICHEN PLANUS [None]
  - MYALGIA [None]
  - SYSTEMIC LUPUS ERYTHEMATOSUS [None]
  - TENDONITIS [None]
  - TINEA VERSICOLOUR [None]
  - VAGINAL ULCERATION [None]
  - VOMITING [None]
  - WEIGHT DECREASED [None]
